FAERS Safety Report 10374739 (Version 1)
Quarter: 2014Q1

REPORT INFORMATION
  Report Type: Spontaneous
  Country: US (occurrence: None)
  Receive Date: 20140306
  Receipt Date: 20140306
  Transmission Date: 20141002
  Serious: Yes (Other)
  Sender: FDA-Public Use
  Company Number: 163-21880-13063536

PATIENT
  Age: 72 Year
  Sex: Female

DRUGS (5)
  1. REVLIMID(LENALIDOMIDE) (25 MILLIGRAM, CAPSULES) [Suspect]
     Indication: PLASMA CELL MYELOMA
     Route: 048
     Dates: start: 20130208, end: 20130221
  2. DECADRON (DEXAMETHASONE) (UNKNOWN) [Concomitant]
  3. VELCADE (BORTEZOMIB) (UNKNOWN) [Concomitant]
  4. ACYCLOVIR (ACICLOVIR) (ACICLOVIR) [Concomitant]
  5. BACTRIM DS (BACTRIM) [Concomitant]

REACTIONS (3)
  - Alanine aminotransferase increased [None]
  - Aspartate aminotransferase increased [None]
  - Blood alkaline phosphatase increased [None]
